FAERS Safety Report 7820645-6 (Version None)
Quarter: 2011Q4

REPORT INFORMATION
  Report Type: 
  Country: None (occurrence: None)
  Receive Date: 20111018
  Receipt Date: 20111011
  Transmission Date: 20120403
  Serious: Yes (Hospitalization)
  Sender: FDA-Public Use
  Company Number: US-ABBOTT-11P-163-0863596-00

PATIENT
  Sex: Male
  Weight: 54.48 kg

DRUGS (9)
  1. HUMIRA [Suspect]
     Indication: RHEUMATOID ARTHRITIS
     Dates: start: 20090801
  2. UNKNOWN MEDICATION [Concomitant]
     Indication: PROSTATIC DISORDER
  3. UNKNOWN MEDICATION [Concomitant]
     Indication: PAIN
  4. CALCIUM CARBONATE [Concomitant]
     Indication: MINERAL SUPPLEMENTATION
  5. TYLENOL-500 [Concomitant]
     Indication: PAIN
  6. CLARITIN [Concomitant]
     Indication: HYPERSENSITIVITY
  7. PNEUMONIA VACCINE [Concomitant]
     Indication: PRODUCT USED FOR UNKNOWN INDICATION
     Dosage: GIVEN WHILE IN THE HOSPITAL
     Dates: start: 20110101, end: 20110101
  8. PLAQUENIL [Concomitant]
     Indication: RHEUMATOID ARTHRITIS
  9. PNEUMONIA VACCINE [Concomitant]

REACTIONS (3)
  - ASTHENIA [None]
  - BACK DISORDER [None]
  - PNEUMONIA [None]
